FAERS Safety Report 12626983 (Version 1)
Quarter: 2016Q3

REPORT INFORMATION
  Report Type: Spontaneous
  Country: US (occurrence: US)
  Receive Date: 20160805
  Receipt Date: 20160805
  Transmission Date: 20161109
  Serious: Yes (Disabling, Other)
  Sender: FDA-Public Use
  Company Number: US-REGENERON PHARMACEUTICALS, INC.-2016-20122

PATIENT

DRUGS (7)
  1. RANIBIZUMAB [Concomitant]
     Active Substance: RANIBIZUMAB
     Indication: PRODUCT USED FOR UNKNOWN INDICATION
     Dosage: 20 INTRAVITREAL INJECTIONS IN THE RIGHT EYE
     Route: 031
  2. AFLIBERCEPT IAI [Suspect]
     Active Substance: AFLIBERCEPT
     Dosage: 21 INTRAVITREAL INJECTIONS IN THE LEFT EYE
     Route: 031
  3. RANIBIZUMAB [Concomitant]
     Active Substance: RANIBIZUMAB
     Dosage: 4 INTRAVITREAL INJECTIONS IN THE LEFT EYE
     Route: 031
  4. AFLIBERCEPT IAI [Suspect]
     Active Substance: AFLIBERCEPT
     Dosage: 20 INTRAVITREAL INJECTIONS IN THE RIGHT EYE
     Route: 031
  5. GATIFLOXACIN. [Concomitant]
     Active Substance: GATIFLOXACIN
     Indication: INFECTION PROPHYLAXIS
     Dosage: UNK UNK, UNK
     Route: 061
  6. AFLIBERCEPT IAI [Suspect]
     Active Substance: AFLIBERCEPT
     Indication: NEOVASCULAR AGE-RELATED MACULAR DEGENERATION
     Dosage: 7 INTRAVITREAL INJECTIONS IN THE RIGHT EYE
     Route: 031
  7. AFLIBERCEPT IAI [Suspect]
     Active Substance: AFLIBERCEPT
     Dosage: 5 INTRAVITREAL INJECTIONS IN THE LEFT EYE
     Route: 031

REACTIONS (2)
  - Blindness [Recovering/Resolving]
  - Endophthalmitis [Unknown]
